FAERS Safety Report 12297433 (Version 1)
Quarter: 2016Q2

REPORT INFORMATION
  Report Type: Spontaneous
  Country: US (occurrence: US)
  Receive Date: 20160422
  Receipt Date: 20160422
  Transmission Date: 20160815
  Serious: Yes (Other)
  Sender: FDA-Public Use
  Company Number: US-GLAXOSMITHKLINE-US2016GSK057060

PATIENT
  Sex: Female

DRUGS (3)
  1. CHOLINE [Concomitant]
     Active Substance: CHOLINE
     Indication: SUPPLEMENTATION THERAPY
     Dosage: UNK
     Route: 048
  2. WELLBUTRIN XL [Suspect]
     Active Substance: BUPROPION HYDROCHLORIDE
     Indication: DEPRESSION
     Dosage: UNK
     Route: 048
  3. BILE SALTS [Concomitant]
     Active Substance: BILE SALTS
     Indication: SUPPLEMENTATION THERAPY
     Dosage: UNK
     Route: 048

REACTIONS (2)
  - Cholecystectomy [Unknown]
  - Weight increased [Not Recovered/Not Resolved]
